FAERS Safety Report 5337414-1 (Version None)
Quarter: 2007Q2

REPORT INFORMATION
  Report Type: 
  Country: None (occurrence: None)
  Receive Date: 20070309
  Receipt Date: 20070118
  Transmission Date: 20071010
  Serious: Yes (Other)
  Sender: FDA-Public Use
  Company Number: US200603000538

PATIENT
  Age: 64 Year
  Sex: Female

DRUGS (8)
  1. GEMZAR [Suspect]
     Indication: BLADDER CANCER
     Dosage: 2300 MG, INTRAVENOUS
     Route: 042
     Dates: start: 20050101, end: 20050901
  2. DEXAMETHASONE TAB [Concomitant]
  3. ARANESP [Concomitant]
  4. HYDROCHLOROTHIAZIDE [Concomitant]
  5. COUMADIN [Concomitant]
  6. VICODIN [Concomitant]
  7. AMBIEN [Concomitant]
  8. . [Concomitant]

REACTIONS (1)
  - PULMONARY TOXICITY [None]
